FAERS Safety Report 26188747 (Version 1)
Quarter: 2025Q4

REPORT INFORMATION
  Report Type: Spontaneous
  Country: US (occurrence: US)
  Receive Date: 20251222
  Receipt Date: 20251222
  Transmission Date: 20260118
  Serious: Yes (Hospitalization, Other)
  Sender: CELLTRION
  Company Number: US-CELLTRION INC.-2025US019716

PATIENT

DRUGS (4)
  1. RITUXIMAB [Suspect]
     Active Substance: RITUXIMAB
     Indication: Vasculitis
     Dosage: TWO 1000MG IV DOSES SEPARATED BY 2 TO 4 WEEKS FOR INDUCTION
     Route: 042
  2. RITUXIMAB [Suspect]
     Active Substance: RITUXIMAB
     Dosage: 1000 MG DOSE EVERY 4 TO 6 MONTHS TO START
     Route: 042
  3. CYCLOPHOSPHAMIDE [Concomitant]
     Active Substance: CYCLOPHOSPHAMIDE
     Dosage: FOR 9 MONTHS
  4. AZATHIOPRINE [Concomitant]
     Active Substance: AZATHIOPRINE
     Dosage: FOR }3Y

REACTIONS (4)
  - Infection [Unknown]
  - Infection [Unknown]
  - B-lymphocyte count decreased [Unknown]
  - Intentional product use issue [Unknown]
